FAERS Safety Report 21442511 (Version 2)
Quarter: 2023Q4

REPORT INFORMATION
  Report Type: Report from Study
  Country: US (occurrence: US)
  Receive Date: 20221011
  Receipt Date: 20231010
  Transmission Date: 20240109
  Serious: No
  Sender: FDA-Public Use
  Company Number: US-ACADIA PHARMACEUTICALS INC.-ACA-2022-PIM-003177

PATIENT
  Age: 65 Year
  Sex: Male

DRUGS (20)
  1. NUPLAZID [Interacting]
     Active Substance: PIMAVANSERIN TARTRATE
     Indication: Parkinson^s disease
     Dosage: 34 MILLIGRAM, QD
     Route: 048
     Dates: start: 20220914
  2. NUPLAZID [Interacting]
     Active Substance: PIMAVANSERIN TARTRATE
     Dosage: 34 MILLIGRAM, QD
     Route: 048
  3. TRAZODONE [Interacting]
     Active Substance: TRAZODONE HYDROCHLORIDE
  4. OMEPRAZOLE [Concomitant]
     Active Substance: OMEPRAZOLE
  5. GABAPENTIN [Concomitant]
     Active Substance: GABAPENTIN
  6. IBUPROFEN [Concomitant]
     Active Substance: IBUPROFEN
  7. CHOLECALCIFEROL [Concomitant]
     Active Substance: CHOLECALCIFEROL
     Dosage: 400
  8. VITAMINS NOS [Concomitant]
     Active Substance: VITAMINS
  9. KLONOPIN [Concomitant]
     Active Substance: CLONAZEPAM
  10. MORNIFLUMATE [Concomitant]
     Active Substance: MORNIFLUMATE
  11. ZYRTEC [Concomitant]
     Active Substance: CETIRIZINE HYDROCHLORIDE
  12. ALPRAZOLAM [Concomitant]
     Active Substance: ALPRAZOLAM
  13. TRETINOIN [Concomitant]
     Active Substance: TRETINOIN
  14. CLINDAGEL [Concomitant]
     Active Substance: CLINDAMYCIN PHOSPHATE
  15. FAMOTIDINE [Concomitant]
     Active Substance: FAMOTIDINE
  16. RYTARY [Concomitant]
     Active Substance: CARBIDOPA\LEVODOPA
  17. LINZESS [Concomitant]
     Active Substance: LINACLOTIDE
  18. XARELTO [Concomitant]
     Active Substance: RIVAROXABAN
  19. DULOXETINE [Concomitant]
     Active Substance: DULOXETINE
  20. MELATONIN [Concomitant]
     Active Substance: MELATONIN

REACTIONS (4)
  - Drug interaction [Unknown]
  - Pain [Unknown]
  - Hallucination [Unknown]
  - Hallucination [Unknown]

NARRATIVE: CASE EVENT DATE: 20220915
